FAERS Safety Report 8078776-4 (Version None)
Quarter: 2012Q1

REPORT INFORMATION
  Report Type: 
  Country: None (occurrence: None)
  Receive Date: 20120127
  Receipt Date: 20110214
  Transmission Date: 20120608
  Serious: No
  Sender: FDA-Public Use
  Company Number: US-ABBOTT-11P-163-0696468-00

PATIENT
  Sex: Female
  Weight: 105.33 kg

DRUGS (9)
  1. KLONOPIN [Concomitant]
     Indication: ANXIETY
  2. PROTONIX [Concomitant]
     Indication: PRODUCT USED FOR UNKNOWN INDICATION
     Route: 048
  3. VICODIN [Concomitant]
     Indication: PAIN
  4. HUMIRA [Suspect]
     Indication: CROHN'S DISEASE
     Route: 058
     Dates: start: 20080331
  5. KLONOPIN [Concomitant]
     Indication: DEPRESSION
  6. SYNTHROID [Concomitant]
     Indication: PRODUCT USED FOR UNKNOWN INDICATION
     Route: 048
  7. TRAZODONE HCL [Concomitant]
     Indication: PRODUCT USED FOR UNKNOWN INDICATION
     Dosage: AT NIGHT
     Route: 048
  8. BENZIL [Concomitant]
     Indication: ABDOMINAL DISCOMFORT
     Route: 048
  9. CELEXA [Concomitant]
     Indication: PRODUCT USED FOR UNKNOWN INDICATION
     Route: 048

REACTIONS (5)
  - INTERVERTEBRAL DISC PROTRUSION [None]
  - CLUMSINESS [None]
  - FALL [None]
  - INJECTION SITE PAIN [None]
  - PAIN [None]
